FAERS Safety Report 6210643-0 (Version None)
Quarter: 2009Q2

REPORT INFORMATION
  Report Type: 
  Country: None (occurrence: None)
  Receive Date: 20090529
  Receipt Date: 20090529
  Transmission Date: 20091009
  Serious: Yes (Other)
  Sender: FDA-Public Use
  Company Number: None

PATIENT
  Age: 9 Year
  Sex: Male
  Weight: 36.2878 kg

DRUGS (1)
  1. DEXTROAMPHETAMINE 10MG BARR [Suspect]
     Indication: ATTENTION DEFICIT/HYPERACTIVITY DISORDER
     Dosage: 1 1X DAY PO
     Route: 048
     Dates: start: 20080601, end: 20080614

REACTIONS (4)
  - COMPLETED SUICIDE [None]
  - CRYING [None]
  - DEPRESSION [None]
  - PRODUCT SUBSTITUTION ISSUE [None]
